FAERS Safety Report 9594570 (Version 1)
Quarter: 2013Q4

REPORT INFORMATION
  Report Type: Spontaneous
  Country: US (occurrence: US)
  Receive Date: 20131004
  Receipt Date: 20131004
  Transmission Date: 20140711
  Serious: No
  Sender: FDA-Public Use
  Company Number: US-009507513-1309USA009509

PATIENT
  Sex: Female

DRUGS (1)
  1. NUVARING [Suspect]
     Indication: CONTRACEPTION
     Dosage: 68 MG / 3 WEEK RING
     Route: 067
     Dates: start: 201306

REACTIONS (3)
  - Device expulsion [Unknown]
  - Product quality issue [Unknown]
  - No adverse event [Unknown]
